FAERS Safety Report 8059828-1 (Version None)
Quarter: 2012Q1

REPORT INFORMATION
  Report Type: 
  Country: None (occurrence: None)
  Receive Date: 20120120
  Receipt Date: 20120113
  Transmission Date: 20120608
  Serious: Yes (Hospitalization, Other)
  Sender: FDA-Public Use
  Company Number: JP-ABBOTT-11P-087-0865894-00

PATIENT
  Sex: Male
  Weight: 70 kg

DRUGS (12)
  1. ISONIAZID [Concomitant]
     Indication: PROPHYLAXIS
     Route: 048
  2. OMEPRAZOLE [Concomitant]
     Indication: ADVERSE EVENT
  3. HUMIRA [Suspect]
     Indication: RHEUMATOID ARTHRITIS
     Route: 058
     Dates: start: 20110902, end: 20110902
  4. HUMIRA [Suspect]
     Dates: start: 20110930
  5. OMEPRAZOLE [Concomitant]
     Indication: PROPHYLAXIS
     Route: 048
  6. FOLIC ACID [Concomitant]
     Indication: PROPHYLAXIS
     Route: 048
  7. REBAMIPIDE [Concomitant]
     Indication: ADVERSE EVENT
  8. ISONIAZID [Concomitant]
     Indication: ADVERSE EVENT
  9. METHOTREXATE [Concomitant]
     Indication: RHEUMATOID ARTHRITIS
     Route: 048
  10. PREDNISOLONE [Concomitant]
     Indication: RHEUMATOID ARTHRITIS
     Route: 048
  11. FOLIC ACID [Concomitant]
     Indication: ADVERSE EVENT
  12. REBAMIPIDE [Concomitant]
     Indication: PROPHYLAXIS
     Route: 048

REACTIONS (5)
  - JOINT SWELLING [None]
  - PHARYNGEAL INFLAMMATION [None]
  - OROPHARYNGEAL DISCOMFORT [None]
  - PURULENT DISCHARGE [None]
  - RHEUMATOID ARTHRITIS [None]
